FAERS Safety Report 7256849 (Version 2)
Quarter: 2019Q2

REPORT INFORMATION
  Report Type: Spontaneous
  Country: LB (occurrence: LB)
  Receive Date: 20100126
  Receipt Date: 20190529
  Transmission Date: 20190711
  Serious: Yes (Hospitalization)
  Sender: FDA-Public Use
  Company Number: PHHY2009LB60533

PATIENT
  Age: 30 Year
  Sex: Female

DRUGS (1)
  1. CALCITONIN [Suspect]
     Active Substance: CALCITONIN
     Indication: BONE MARROW OEDEMA SYNDROME
     Route: 065

REACTIONS (10)
  - Gait disturbance [Unknown]
  - Limb asymmetry [Unknown]
  - Pain [Unknown]
  - Bone formation decreased [Unknown]
  - Hip fracture [Recovered/Resolved]
  - Joint range of motion decreased [Unknown]
  - Osteopenia [Recovered/Resolved]
  - Osteoarthritis [Unknown]
  - Premature delivery [Unknown]
  - Maternal exposure during pregnancy [Unknown]
